FAERS Safety Report 7867458-7 (Version None)
Quarter: 2011Q4

REPORT INFORMATION
  Report Type: 
  Country: None (occurrence: None)
  Receive Date: 20111028
  Receipt Date: 20111018
  Transmission Date: 20120403
  Serious: Yes (Hospitalization)
  Sender: FDA-Public Use
  Company Number: AU-SANOFI-AVENTIS-2011SA070467

PATIENT
  Age: 54 Year
  Sex: Male

DRUGS (6)
  1. NOVORAPID [Concomitant]
  2. SIMVASTATIN [Concomitant]
  3. METFORMIN [Concomitant]
  4. ATACAND [Concomitant]
  5. ALL OTHER THERAPEUTIC PRODUCTS [Concomitant]
  6. LANTUS [Suspect]
     Route: 058
     Dates: start: 20040101

REACTIONS (2)
  - PILONIDAL CYST [None]
  - SKIN ULCER [None]
